FAERS Safety Report 23073438 (Version 1)
Quarter: 2023Q4

REPORT INFORMATION
  Report Type: Spontaneous
  Country: ZW (occurrence: ZW)
  Receive Date: 20231017
  Receipt Date: 20231017
  Transmission Date: 20240110
  Serious: Yes (Other)
  Sender: FDA-Public Use
  Company Number: ZW-BRISTOL-MYERS SQUIBB COMPANY-2023-146045

PATIENT
  Age: 70 Year
  Sex: Male

DRUGS (5)
  1. ELIQUIS [Suspect]
     Active Substance: APIXABAN
     Indication: Pulmonary embolism
  2. VALSARTAN [Concomitant]
     Active Substance: VALSARTAN
     Indication: Product used for unknown indication
  3. TORSEMIDE [Concomitant]
     Active Substance: TORSEMIDE
     Indication: Product used for unknown indication
  4. NEBIVOLOL HYDROCHLORIDE [Concomitant]
     Active Substance: NEBIVOLOL HYDROCHLORIDE
     Indication: Product used for unknown indication
  5. BEESWAX [Concomitant]
     Active Substance: YELLOW WAX
     Indication: Product used for unknown indication

REACTIONS (2)
  - Urinary bladder haemorrhage [Recovered/Resolved]
  - Rectal haemorrhage [Recovered/Resolved]
